FAERS Safety Report 23964476 (Version 1)
Quarter: 2024Q2

REPORT INFORMATION
  Report Type: Report from Study
  Country: US (occurrence: US)
  Receive Date: 20240612
  Receipt Date: 20240612
  Transmission Date: 20240716
  Serious: Yes (Other)
  Sender: FDA-Public Use
  Company Number: US-PFIZER INC-2024SGN05240

PATIENT
  Age: 65 Year
  Sex: Female

DRUGS (6)
  1. TUKYSA [Suspect]
     Active Substance: TUCATINIB
     Indication: Breast cancer metastatic
     Dosage: 150 MG
     Dates: start: 20230306
  2. TUKYSA [Suspect]
     Active Substance: TUCATINIB
     Dosage: 50 MG
     Dates: start: 20230306
  3. TUKYSA [Suspect]
     Active Substance: TUCATINIB
     Dosage: 150 MG
  4. TUKYSA [Suspect]
     Active Substance: TUCATINIB
     Dosage: 50 MG
  5. XELODA [Concomitant]
     Active Substance: CAPECITABINE
     Indication: Breast cancer metastatic
     Dosage: 500 MG
  6. LETROZOLE [Concomitant]
     Active Substance: LETROZOLE
     Dosage: 2.5 MG

REACTIONS (3)
  - Hepatic cancer metastatic [Unknown]
  - Metastases to lymph nodes [Unknown]
  - Lung infiltration [Unknown]
